FAERS Safety Report 20456552 (Version 3)
Quarter: 2022Q2

REPORT INFORMATION
  Report Type: Report from Study
  Country: MD (occurrence: None)
  Receive Date: 20220210
  Receipt Date: 20220527
  Transmission Date: 20220721
  Serious: Yes (Death, Hospitalization)
  Sender: FDA-Public Use
  Company Number: DE-ROCHE-2988676

PATIENT
  Age: 47 Year
  Sex: Male
  Weight: 84 kg

DRUGS (2)
  1. TIRAGOLUMAB [Suspect]
     Active Substance: TIRAGOLUMAB
     Indication: Metastatic neoplasm
     Dosage: THE START DATE OF MOST RECENT DOSE OF TIRAGOLUMAB CO-INJECTION (876.86 MG) PRIOR TO AE AND SAE: 06/D
     Route: 058
     Dates: start: 20211206
  2. ATEZOLIZUMAB [Suspect]
     Active Substance: ATEZOLIZUMAB
     Indication: Metastatic neoplasm
     Dosage: THE START DATE OF MOST RECENT DOSE OF ATEZOLIZUMAB (SC) CO-MIX (2002.45 MG) PRIOR TO AE AND SAE: 06/
     Route: 058
     Dates: start: 20211206

REACTIONS (1)
  - Encephalitis [Fatal]

NARRATIVE: CASE EVENT DATE: 20211220
